FAERS Safety Report 12538869 (Version 1)
Quarter: 2016Q3

REPORT INFORMATION
  Report Type: Spontaneous
  Country: GB (occurrence: GB)
  Receive Date: 20160708
  Receipt Date: 20160708
  Transmission Date: 20161109
  Serious: Yes (Life-Threatening, Hospitalization, Other)
  Sender: FDA-Public Use
  Company Number: GB-TEVA-672098ACC

PATIENT
  Age: 91 Year
  Sex: Female

DRUGS (11)
  1. BISOPROLOL [Concomitant]
     Active Substance: BISOPROLOL
  2. FUROSEMIDE. [Concomitant]
     Active Substance: FUROSEMIDE
  3. RISPERIDONE. [Suspect]
     Active Substance: RISPERIDONE
     Indication: NEUROPSYCHIATRIC SYMPTOMS
     Dosage: .5 MILLIGRAM DAILY;
     Route: 048
     Dates: start: 20160603
  4. EZETIMIBE. [Concomitant]
     Active Substance: EZETIMIBE
  5. GTN [Concomitant]
     Active Substance: NITROGLYCERIN
  6. QUININE SULPHATE [Concomitant]
     Active Substance: QUININE SULFATE
  7. DIAZEPAM. [Concomitant]
     Active Substance: DIAZEPAM
  8. NICORANDIL [Concomitant]
     Active Substance: NICORANDIL
  9. RAMIPRIL. [Concomitant]
     Active Substance: RAMIPRIL
  10. ASPIRIN. [Concomitant]
     Active Substance: ASPIRIN
  11. ATORVASTATIN [Concomitant]
     Active Substance: ATORVASTATIN

REACTIONS (2)
  - Myocardial infarction [Unknown]
  - Acute coronary syndrome [Recovering/Resolving]

NARRATIVE: CASE EVENT DATE: 20160609
